FAERS Safety Report 8618675 (Version 3)
Quarter: 2012Q4

REPORT INFORMATION
  Report Type: 
  Country: US (occurrence: US)
  Receive Date: 20120618
  Receipt Date: 20120830
  Transmission Date: 20130627
  Serious: No
  Sender: FDA-Public Use
  Company Number: US-PFIZER INC-2012142706

PATIENT
  Age: 61 Year
  Sex: Male
  Weight: 95.24 kg

DRUGS (4)
  1. VIAGRA [Suspect]
     Indication: ERECTILE DYSFUNCTION
     Dosage: 50 mg, UNK
     Route: 048
     Dates: start: 20120425
  2. VIAGRA [Suspect]
     Dosage: 100 mg, UNK
     Route: 048
     Dates: start: 201205, end: 2012
  3. VIAGRA [Suspect]
     Dosage: 100 mg, UNK
     Route: 048
     Dates: start: 20120601, end: 20120602
  4. VIAGRA [Suspect]

REACTIONS (1)
  - Drug ineffective [Unknown]
